FAERS Safety Report 4621325-0 (Version None)
Quarter: 2005Q1

REPORT INFORMATION
  Report Type: 
  Country: None (occurrence: None)
  Receive Date: 20050323
  Receipt Date: 20050323
  Transmission Date: 20050727
  Serious: Yes (Other)
  Sender: FDA-Public Use
  Company Number: None

PATIENT
  Sex: Male
  Weight: 93.8 kg

DRUGS (2)
  1. IBRITUMOMAB TIUXETAN [Suspect]
     Indication: B-CELL LYMPHOMA
     Dosage: 31.2 MCI; ONCE IV
     Route: 042
     Dates: start: 20050202
  2. MULTI-VITAMIN [Concomitant]

REACTIONS (2)
  - LABORATORY TEST ABNORMAL [None]
  - NEUTROPHIL COUNT ABNORMAL [None]
